FAERS Safety Report 7928540-9 (Version None)
Quarter: 2011Q4

REPORT INFORMATION
  Report Type: 
  Country: None (occurrence: None)
  Receive Date: 20111118
  Receipt Date: 20111114
  Transmission Date: 20120403
  Serious: Yes (Death)
  Sender: FDA-Public Use
  Company Number: DE-BRISTOL-MYERS SQUIBB COMPANY-16186959

PATIENT

DRUGS (1)
  1. AMPHOTERICIN B [Suspect]
     Indication: ASPERGILLOSIS
     Dosage: 6MG/KG ONCE

REACTIONS (1)
  - DEATH [None]
